FAERS Safety Report 24766013 (Version 1)
Quarter: 2024Q4

REPORT INFORMATION
  Report Type: Report from Study
  Country: IN (occurrence: IN)
  Receive Date: 20241223
  Receipt Date: 20241223
  Transmission Date: 20250115
  Serious: Yes (Death, Other)
  Sender: DAIICHI
  Company Number: IN-AstraZeneca-CH-00771293A

PATIENT
  Sex: Female

DRUGS (1)
  1. ENHERTU [Suspect]
     Active Substance: FAM-TRASTUZUMAB DERUXTECAN-NXKI
     Indication: Intravesical immunotherapy
     Dosage: UNK
     Route: 041

REACTIONS (1)
  - Death [Fatal]
